FAERS Safety Report 24294437 (Version 3)
Quarter: 2025Q2

REPORT INFORMATION
  Report Type: Spontaneous
  Country: PT (occurrence: PT)
  Receive Date: 20240906
  Receipt Date: 20250409
  Transmission Date: 20250716
  Serious: Yes (Other)
  Sender: TAKEDA
  Company Number: PT-INCYTE CORPORATION-2024IN009278

PATIENT
  Age: 60 Year
  Sex: Female

DRUGS (4)
  1. ICLUSIG [Suspect]
     Active Substance: PONATINIB HYDROCHLORIDE
     Indication: B-cell type acute leukaemia
  2. ICLUSIG [Suspect]
     Active Substance: PONATINIB HYDROCHLORIDE
     Indication: Philadelphia positive acute lymphocytic leukaemia
  3. BLINATUMOMAB [Suspect]
     Active Substance: BLINATUMOMAB
     Indication: B-cell type acute leukaemia
  4. BLINATUMOMAB [Suspect]
     Active Substance: BLINATUMOMAB
     Indication: Philadelphia positive acute lymphocytic leukaemia

REACTIONS (6)
  - Optic neuritis [Recovering/Resolving]
  - Metastases to meninges [Unknown]
  - CSF protein increased [Unknown]
  - CSF lymphocyte count abnormal [Unknown]
  - Central nervous system leukaemia [Unknown]
  - Dyschromatopsia [Unknown]
